FAERS Safety Report 6811368-0 (Version None)
Quarter: 2010Q2

REPORT INFORMATION
  Report Type: 
  Country: None (occurrence: None)
  Receive Date: 20100629
  Receipt Date: 20100629
  Transmission Date: 20101027
  Serious: Yes (Other)
  Sender: FDA-Public Use
  Company Number: None

PATIENT
  Sex: Female
  Weight: 61.2356 kg

DRUGS (2)
  1. SULFAMETHOXAZOLE AND TRIMETHOPRIM DOUBLE STRENGTH [Suspect]
     Indication: PHARYNGITIS STREPTOCOCCAL
     Dosage: 1 TWICE A DAY
     Dates: start: 20100607
  2. SULFAMETHOXAZOLE AND TRIMETHOPRIM DOUBLE STRENGTH [Suspect]
     Indication: PHARYNGITIS STREPTOCOCCAL
     Dosage: 1 TWICE A DAY
     Dates: start: 20100609

REACTIONS (10)
  - ABDOMINAL DISCOMFORT [None]
  - DIZZINESS [None]
  - DYSPEPSIA [None]
  - DYSPHAGIA [None]
  - LIP SWELLING [None]
  - OEDEMA MOUTH [None]
  - PALPITATIONS [None]
  - RASH [None]
  - SKIN DISCOLOURATION [None]
  - SWELLING FACE [None]
